FAERS Safety Report 5407230-0 (Version None)
Quarter: 2007Q3

REPORT INFORMATION
  Report Type: 
  Country: None (occurrence: None)
  Receive Date: 20070807
  Receipt Date: 20070802
  Transmission Date: 20080115
  Serious: Yes (Death)
  Sender: FDA-Public Use
  Company Number: A0667879A

PATIENT
  Age: 71 Year
  Sex: Male

DRUGS (4)
  1. COREG [Suspect]
     Route: 048
     Dates: start: 20020101, end: 20060301
  2. POTASSIUM CHLORIDE [Concomitant]
  3. INSULIN [Concomitant]
  4. DIABETES MEDICATION [Concomitant]

REACTIONS (1)
  - DEATH [None]
